FAERS Safety Report 9388110 (Version 3)
Quarter: 2013Q3

REPORT INFORMATION
  Report Type: Report from Study
  Country: CA (occurrence: CA)
  Receive Date: 20130708
  Receipt Date: 20130802
  Transmission Date: 20140515
  Serious: Yes (Hospitalization, Other)
  Sender: FDA-Public Use
  Company Number: CA-ABBOTT-13P-028-1113997-00

PATIENT
  Age: 58 Year
  Sex: Female

DRUGS (2)
  1. HUMIRA [Suspect]
     Indication: CROHN^S DISEASE
     Route: 058
     Dates: start: 20080714, end: 20130628
  2. HUMIRA [Suspect]
     Dates: start: 20130703

REACTIONS (6)
  - Malaise [Unknown]
  - Abdominal distension [Unknown]
  - Ileal stenosis [Recovered/Resolved]
  - Intestinal fibrosis [Recovered/Resolved]
  - Abdominal pain [Unknown]
  - Nausea [Unknown]
